FAERS Safety Report 21087710 (Version 1)
Quarter: 2022Q3

REPORT INFORMATION
  Report Type: Spontaneous
  Country: CA (occurrence: CA)
  Receive Date: 20220715
  Receipt Date: 20220715
  Transmission Date: 20221026
  Serious: Yes (Death, Congenital Anomaly, Other)
  Sender: FDA-Public Use
  Company Number: CA-TEVA-2022-CA-2053270

PATIENT

DRUGS (3)
  1. VALSARTAN [Suspect]
     Active Substance: VALSARTAN
     Indication: Hypertension
     Route: 064
  2. VALSARTAN [Suspect]
     Active Substance: VALSARTAN
     Indication: Acute kidney injury
  3. LASIX [Concomitant]
     Active Substance: FUROSEMIDE
     Indication: Product used for unknown indication
     Route: 064

REACTIONS (9)
  - Anuria [Fatal]
  - Foetal malformation [Fatal]
  - Hypocalvaria [Fatal]
  - Hypotension [Fatal]
  - Limb deformity [Fatal]
  - Potter^s syndrome [Fatal]
  - Renal aplasia [Fatal]
  - Respiratory failure [Fatal]
  - Foetal exposure during pregnancy [Fatal]
